FAERS Safety Report 10637981 (Version 36)
Quarter: 2019Q4

REPORT INFORMATION
  Report Type: Spontaneous
  Country: US (occurrence: US)
  Receive Date: 20141208
  Receipt Date: 20191111
  Transmission Date: 20200122
  Serious: Yes (Hospitalization, Other)
  Sender: FDA-Public Use
  Company Number: US-ACTELION-A-US2014-108898

PATIENT
  Age: 47 Year
  Sex: Female
  Weight: 67.12 kg

DRUGS (40)
  1. NEURONTIN [Concomitant]
     Active Substance: GABAPENTIN
     Dosage: 300 MG, TID
  2. PERCOCET [Concomitant]
     Active Substance: ACETAMINOPHEN\OXYCODONE HYDROCHLORIDE
     Dosage: 10-325
  3. MULTIVITAMIN [Concomitant]
     Active Substance: VITAMINS
     Dosage: UNK, QD
  4. CEFTIN [Concomitant]
     Active Substance: CEFUROXIME AXETIL
  5. ACLOVATE [Concomitant]
     Active Substance: ALCLOMETASONE DIPROPIONATE
  6. VENTOLIN HFA [Concomitant]
     Active Substance: ALBUTEROL SULFATE
  7. TIZANIDINE. [Concomitant]
     Active Substance: TIZANIDINE
     Dosage: 4 MG, PRN
  8. FLUTICASONE. [Concomitant]
     Active Substance: FLUTICASONE
     Dosage: 2 SPRAY, QD
  9. LACTULOSE. [Concomitant]
     Active Substance: LACTULOSE
     Dosage: 10-20 TID PRN
  10. GABAPENTIN. [Concomitant]
     Active Substance: GABAPENTIN
  11. REVATIO [Concomitant]
     Active Substance: SILDENAFIL CITRATE
     Dosage: 60 MG, TID
  12. BENADRYL [Concomitant]
     Active Substance: DIPHENHYDRAMINE HYDROCHLORIDE
     Dosage: 25 MG, 1 - 2 CAPS
  13. TIZANIDINE. [Concomitant]
     Active Substance: TIZANIDINE
     Dosage: 2 MG, PRN
  14. PROTONIX [Concomitant]
     Active Substance: PANTOPRAZOLE SODIUM
     Dosage: 40 MG, BID
  15. ALBUTEROL. [Concomitant]
     Active Substance: ALBUTEROL
     Dosage: 2 PUFF, Q4HR, PRN
  16. AMBIEN [Concomitant]
     Active Substance: ZOLPIDEM TARTRATE
     Dosage: 5 MG,  QHS, PRN
  17. PROAIR HFA [Concomitant]
     Active Substance: ALBUTEROL SULFATE
     Dosage: 2 PUFFS, Q4, PRN
  18. TRAMADOL. [Concomitant]
     Active Substance: TRAMADOL
     Dosage: 50 MG, PRN Q6H
  19. KEFLEX [Concomitant]
     Active Substance: CEPHALEXIN
     Dosage: UNK
     Dates: start: 20180802
  20. VELETRI [Suspect]
     Active Substance: EPOPROSTENOL
     Dosage: 30 NG/KG, PER MIN
     Route: 042
  21. IMODIUM [Suspect]
     Active Substance: LOPERAMIDE HYDROCHLORIDE
     Indication: PRODUCT USED FOR UNKNOWN INDICATION
     Route: 065
  22. FLOLAN [Concomitant]
     Active Substance: EPOPROSTENOL SODIUM
     Dosage: 1.5 MG, UNK
     Route: 042
  23. POTASSIUM CHLORIDE. [Concomitant]
     Active Substance: POTASSIUM CHLORIDE
     Dosage: 10 MEQ, QD
  24. MARIJUANA [Concomitant]
     Active Substance: CANNABIS SATIVA SUBSP. INDICA TOP
  25. REVATIO [Concomitant]
     Active Substance: SILDENAFIL CITRATE
     Dosage: 20 MG, TID
  26. PROZAC [Concomitant]
     Active Substance: FLUOXETINE HYDROCHLORIDE
     Dosage: 20 UNK, UNK
  27. NEURONTIN [Concomitant]
     Active Substance: GABAPENTIN
     Dosage: 900 MG, TID
  28. VELETRI [Suspect]
     Active Substance: EPOPROSTENOL
     Indication: PULMONARY ARTERIAL HYPERTENSION
     Dosage: 30 NG/KG, PER MIN
     Route: 042
     Dates: start: 20130130
  29. OXYGEN. [Concomitant]
     Active Substance: OXYGEN
  30. ATIVAN [Concomitant]
     Active Substance: LORAZEPAM
     Dosage: 1 MG, TID, PRN
  31. PROZAC [Concomitant]
     Active Substance: FLUOXETINE HYDROCHLORIDE
     Dosage: 10 MG, QD
  32. NEURONTIN [Concomitant]
     Active Substance: GABAPENTIN
     Dosage: 600 MG, TID
  33. FUROSEMIDE. [Concomitant]
     Active Substance: FUROSEMIDE
     Dosage: 10 MG, QD
  34. CLARITIN [Concomitant]
     Active Substance: LORATADINE
  35. TRACLEER [Suspect]
     Active Substance: BOSENTAN
     Indication: PULMONARY ARTERIAL HYPERTENSION
     Dosage: 125 MG, BID
     Route: 048
  36. VELETRI [Suspect]
     Active Substance: EPOPROSTENOL
     Dosage: 30 NG/KG, PER MIN
     Route: 042
  37. MORPHINE [Concomitant]
     Active Substance: MORPHINE
     Dosage: 30 MG, BID
  38. ZOFRAN [Concomitant]
     Active Substance: ONDANSETRON HYDROCHLORIDE
     Dosage: 4-8 MG Q4-6H PRN
  39. VITAMIN D2 [Concomitant]
     Active Substance: ERGOCALCIFEROL
  40. FLONASE [Concomitant]
     Active Substance: FLUTICASONE PROPIONATE

REACTIONS (49)
  - Gastroenteritis viral [Unknown]
  - Clostridium difficile infection [Unknown]
  - Pain in jaw [Unknown]
  - Fatigue [Unknown]
  - Gastroenteritis [Unknown]
  - Erythema [Unknown]
  - Syncope [Unknown]
  - Fall [Unknown]
  - Hot flush [Unknown]
  - Pleural effusion [Unknown]
  - Migraine [Recovered/Resolved]
  - Anxiety [Unknown]
  - Device leakage [Unknown]
  - Urinary tract infection [Recovering/Resolving]
  - Pneumonia [Unknown]
  - Gastrointestinal disorder [Unknown]
  - Abdominal pain lower [Recovering/Resolving]
  - Malaise [Recovering/Resolving]
  - Drug withdrawal syndrome [Unknown]
  - Blood potassium decreased [Unknown]
  - Pancreatitis [Unknown]
  - Dehydration [Recovering/Resolving]
  - Swelling [Unknown]
  - Palpitations [Unknown]
  - Gallbladder disorder [Unknown]
  - Cellulitis [Unknown]
  - Atrial flutter [Unknown]
  - Urticaria [Unknown]
  - Constipation [Unknown]
  - Complication associated with device [Unknown]
  - Muscle spasms [Unknown]
  - Nausea [Unknown]
  - Vomiting [Unknown]
  - Diarrhoea [Not Recovered/Not Resolved]
  - Back pain [Not Recovered/Not Resolved]
  - Product dose omission [Unknown]
  - Rash [Not Recovered/Not Resolved]
  - Decreased appetite [Unknown]
  - Dyspnoea exertional [Not Recovered/Not Resolved]
  - Flushing [Not Recovered/Not Resolved]
  - Cyclic vomiting syndrome [Recovering/Resolving]
  - Cough [Unknown]
  - Nephrolithiasis [Unknown]
  - Abnormal loss of weight [Unknown]
  - Pain [Unknown]
  - Abdominal pain [Unknown]
  - Clostridium test positive [Recovering/Resolving]
  - Drug hypersensitivity [Unknown]
  - Chest pain [Not Recovered/Not Resolved]

NARRATIVE: CASE EVENT DATE: 20141221
